FAERS Safety Report 12099372 (Version 1)
Quarter: 2016Q1

REPORT INFORMATION
  Report Type: Spontaneous
  Country: US (occurrence: None)
  Receive Date: 20160219
  Receipt Date: 20160219
  Transmission Date: 20160526
  Serious: No
  Sender: FDA-Public Use
  Company Number: None

PATIENT
  Age: 47 Year
  Sex: Male

DRUGS (1)
  1. VIEKIRA PAK [Suspect]
     Active Substance: DASABUVIR\OMBITASVIR\PARITAPREVIR\RITONAVIR
     Indication: HEPATITIS C
     Dosage: 2 PINK TABLETS QAM AND 1 BEIGE TABLET 2 PINK TABLETS QAM AND 1 PO
     Route: 048
     Dates: start: 20160201

REACTIONS (3)
  - Nausea [None]
  - Headache [None]
  - Flushing [None]
